FAERS Safety Report 21484952 (Version 1)
Quarter: 2022Q4

REPORT INFORMATION
  Report Type: Spontaneous
  Country: US (occurrence: US)
  Receive Date: 20221020
  Receipt Date: 20221020
  Transmission Date: 20230112
  Serious: Yes (Hospitalization, Other)
  Sender: FDA-Public Use
  Company Number: US-APOTEX-2022AP014436

PATIENT
  Age: 48 Year
  Sex: Male

DRUGS (2)
  1. TESTOSTERONE [Suspect]
     Active Substance: TESTOSTERONE
     Indication: Hormone replacement therapy
     Dosage: UNK
     Route: 065
  2. TESTOSTERONE [Suspect]
     Active Substance: TESTOSTERONE
     Indication: Hypogonadism

REACTIONS (4)
  - Electrocardiogram ST segment elevation [Recovering/Resolving]
  - Coronary artery disease [Recovering/Resolving]
  - Sinus tachycardia [Recovering/Resolving]
  - Bundle branch block right [Recovering/Resolving]
